FAERS Safety Report 16097423 (Version 2)
Quarter: 2020Q2

REPORT INFORMATION
  Report Type: Spontaneous
  Country: US (occurrence: US)
  Receive Date: 20190320
  Receipt Date: 20200622
  Transmission Date: 20200713
  Serious: Yes (Other)
  Sender: FDA-Public Use
  Company Number: US-PFIZER INC-2019115933

PATIENT
  Age: 73 Year
  Sex: Female

DRUGS (1)
  1. XELJANZ [Suspect]
     Active Substance: TOFACITINIB CITRATE
     Indication: RHEUMATOID ARTHRITIS
     Dosage: 5 MG, 2X/DAY
     Route: 048
     Dates: start: 201703

REACTIONS (9)
  - Tooth avulsion [Unknown]
  - Depression [Unknown]
  - Loss of consciousness [Unknown]
  - Malaise [Unknown]
  - Cyst [Unknown]
  - Pain [Unknown]
  - Breast pain [Unknown]
  - Eye discharge [Unknown]
  - Fall [Unknown]

NARRATIVE: CASE EVENT DATE: 201901
